FAERS Safety Report 18186068 (Version 2)
Quarter: 2022Q2

REPORT INFORMATION
  Report Type: Spontaneous
  Country: US (occurrence: US)
  Receive Date: 20200824
  Receipt Date: 20220511
  Transmission Date: 20220720
  Serious: Yes (Other)
  Sender: FDA-Public Use
  Company Number: US-SAARTEMIS-SAC202008190348

PATIENT
  Age: 66 Year
  Sex: Female

DRUGS (1)
  1. ZANTAC [Suspect]
     Active Substance: RANITIDINE HYDROCHLORIDE
     Dosage: 150 MG,FREQUENCY: OTHER
     Dates: start: 200901, end: 201912

REACTIONS (1)
  - Lung carcinoma cell type unspecified stage 0 [Not Recovered/Not Resolved]

NARRATIVE: CASE EVENT DATE: 20181021
